FAERS Safety Report 4937792-9 (Version None)
Quarter: 2006Q1

REPORT INFORMATION
  Report Type: 
  Country: None (occurrence: None)
  Receive Date: 20060306
  Receipt Date: 20060224
  Transmission Date: 20060701
  Serious: Yes (Life-Threatening, Other)
  Sender: FDA-Public Use
  Company Number: HQWYE003424FEB06

PATIENT
  Age: 14 Year
  Sex: Female
  Weight: 54.48 kg

DRUGS (1)
  1. ADVIL [Suspect]
     Indication: HEADACHE
     Dosage: ^TOOK 2^ AT ONE TIME, ORAL
     Route: 048
     Dates: start: 20060223, end: 20060223

REACTIONS (4)
  - ANAPHYLACTIC REACTION [None]
  - BLINDNESS TRANSIENT [None]
  - BLOOD PRESSURE IMMEASURABLE [None]
  - SYNCOPE [None]
